FAERS Safety Report 5449669-3 (Version None)
Quarter: 2007Q3

REPORT INFORMATION
  Report Type: 
  Country: None (occurrence: None)
  Receive Date: 20070910
  Receipt Date: 20070910
  Transmission Date: 20080115
  Serious: Yes (Other)
  Sender: FDA-Public Use
  Company Number: None

PATIENT
  Age: 48 Year
  Sex: Female

DRUGS (2)
  1. TRIAMTERENE AND HYDROCHLOROTHIAZIDE [Suspect]
     Indication: HYPERTENSION
     Dosage: 37 - 25 DAILY ORAL
     Route: 048
     Dates: start: 20060608, end: 20060912
  2. TRIAMTERENE AND HYDROCHLOROTHIAZIDE [Suspect]
     Indication: OEDEMA PERIPHERAL
     Dosage: 37 - 25 DAILY ORAL
     Route: 048
     Dates: start: 20060608, end: 20060912

REACTIONS (2)
  - RASH [None]
  - SWELLING [None]
